FAERS Safety Report 6572714-9 (Version None)
Quarter: 2010Q1

REPORT INFORMATION
  Report Type: 
  Country: None (occurrence: None)
  Receive Date: 20100205
  Receipt Date: 20100127
  Transmission Date: 20100710
  Serious: Yes (Other)
  Sender: FDA-Public Use
  Company Number: US-PFIZER INC-2010013910

PATIENT
  Sex: Male
  Weight: 104.31 kg

DRUGS (2)
  1. LIPITOR [Suspect]
     Indication: MYOCARDIAL INFARCTION
     Dosage: 80 MG, 1X/DAY
     Route: 048
     Dates: start: 20000101
  2. LIPITOR [Suspect]
     Indication: CARDIAC OPERATION

REACTIONS (2)
  - GYNAECOMASTIA [None]
  - PROSTATE CANCER [None]
